FAERS Safety Report 5511160-3 (Version None)
Quarter: 2007Q4

REPORT INFORMATION
  Report Type: 
  Country: None (occurrence: None)
  Receive Date: 20071107
  Receipt Date: 20071026
  Transmission Date: 20080405
  Serious: Yes (Life-Threatening)
  Sender: FDA-Public Use
  Company Number: 2007AL004600

PATIENT
  Age: 69 Year
  Sex: Male

DRUGS (7)
  1. METFORMIN HYDROCHLORIDE [Suspect]
     Indication: DIABETES MELLITUS
     Dosage: 200 MG; QD; PO
     Route: 048
     Dates: start: 20060301
  2. GTN-S [Concomitant]
  3. GLICLAZIDE [Concomitant]
  4. RAMIPRIL [Concomitant]
  5. BISOPROLOL FUMARATE [Concomitant]
  6. ATORVASTATIN CALCIUM [Concomitant]
  7. ACETYLSALICYLIC ACID SRT [Concomitant]

REACTIONS (8)
  - ABDOMINAL PAIN [None]
  - BLOOD GLUCOSE FLUCTUATION [None]
  - CARDIAC FLUTTER [None]
  - CHEST DISCOMFORT [None]
  - DYSPNOEA [None]
  - FLATULENCE [None]
  - MALAISE [None]
  - PALLOR [None]
